FAERS Safety Report 8923384 (Version 1)
Quarter: 2012Q4

REPORT INFORMATION
  Report Type: 
  Country: NL (occurrence: NL)
  Receive Date: 20121124
  Receipt Date: 20121124
  Transmission Date: 20130627
  Serious: Yes (Hospitalization)
  Sender: FDA-Public Use
  Company Number: PHHO2012NL016463

PATIENT
  Age: 58 Year
  Sex: Female

DRUGS (5)
  1. MYFORTIC [Suspect]
     Indication: RENAL TRANSPLANT
     Dosage: 540 mg, BID
     Route: 048
     Dates: end: 20121118
  2. PROGRAF [Suspect]
     Indication: RENAL TRANSPLANT
     Dosage: 1.5 mg, BID
     Route: 048
     Dates: end: 20121118
  3. PROGRAF [Suspect]
     Dosage: 2.5 mg, BID
     Route: 048
     Dates: start: 20121119
  4. STEROIDS NOS [Concomitant]
     Dosage: 7.5 mg, QD
     Route: 048
     Dates: end: 20121117
  5. STEROIDS NOS [Concomitant]
     Dosage: 10 mg, BID
     Route: 048
     Dates: start: 20121118

REACTIONS (3)
  - Hypophagia [Unknown]
  - Mouth ulceration [Unknown]
  - Candidiasis [Unknown]
